FAERS Safety Report 14165649 (Version 1)
Quarter: 2017Q4

REPORT INFORMATION
  Report Type: Spontaneous
  Country: CN (occurrence: CN)
  Receive Date: 20171107
  Receipt Date: 20171107
  Transmission Date: 20180321
  Serious: Yes (Hospitalization)
  Sender: FDA-Public Use
  Company Number: CN-PFIZER INC-2017472322

PATIENT
  Age: 81 Year
  Sex: Female
  Weight: 40 kg

DRUGS (5)
  1. JI JIA [Concomitant]
     Indication: HYPERTENSION
     Dosage: 1 DF, 1X/DAY
     Route: 048
     Dates: start: 20170713, end: 20170904
  2. CELEBREX [Suspect]
     Active Substance: CELECOXIB
     Indication: ANALGESIC THERAPY
     Dosage: 1 DF, 1X/DAY
     Route: 048
     Dates: start: 20170713, end: 20170720
  3. YI SUO JIA [Concomitant]
     Indication: OSTEOARTHRITIS
     Dosage: 2 DF, 3X/DAY
     Route: 048
     Dates: start: 20170713, end: 20170720
  4. ATORVASTATIN CALCIUM. [Suspect]
     Active Substance: ATORVASTATIN CALCIUM
     Indication: ARTERIOSCLEROSIS CORONARY ARTERY
     Dosage: 1 DF, 1X/DAY
     Route: 048
     Dates: start: 20170713, end: 20170727
  5. ASPIRIN BAYER [Concomitant]
     Active Substance: ASPIRIN
     Indication: HYPERTENSION
     Dosage: 1 DF, 1X/DAY
     Route: 048
     Dates: start: 20170713, end: 20170727

REACTIONS (3)
  - Drug-induced liver injury [Recovering/Resolving]
  - Hepatitis cholestatic [Recovering/Resolving]
  - Hepatic function abnormal [Recovering/Resolving]

NARRATIVE: CASE EVENT DATE: 20170720
